FAERS Safety Report 7489985 (Version 7)
Quarter: 2013Q3

REPORT INFORMATION
  Report Type: Report from Study
  Country: US (occurrence: US)
  Receive Date: 20100719
  Receipt Date: 20130715
  Transmission Date: 20140515
  Serious: Yes (Hospitalization)
  Sender: FDA-Public Use
  Company Number: US-BRISTOL-MYERS SQUIBB COMPANY-15185036

PATIENT
  Age: 69 Year
  Sex: Male

DRUGS (6)
  1. METFORMIN HCL [Suspect]
     Indication: TYPE 2 DIABETES MELLITUS
     Route: 048
  2. PLACEBO [Suspect]
     Indication: TYPE 2 DIABETES MELLITUS
     Route: 048
     Dates: start: 20100701, end: 20100703
  3. ZESTRIL [Suspect]
     Dates: start: 20070602
  4. ZOCOR [Suspect]
     Dates: start: 2003
  5. NIACIN [Concomitant]
  6. ASPIRIN [Concomitant]

REACTIONS (2)
  - Pancreatitis [Recovered/Resolved]
  - Angina pectoris [Recovered/Resolved]
